FAERS Safety Report 8976793 (Version 7)
Quarter: 2013Q3

REPORT INFORMATION
  Report Type: Spontaneous
  Country: US (occurrence: US)
  Receive Date: 20121220
  Receipt Date: 20130918
  Transmission Date: 20140515
  Serious: Yes (Hospitalization, Other)
  Sender: FDA-Public Use
  Company Number: US-009507513-1212USA007597

PATIENT
  Sex: Male
  Weight: 110.66 kg

DRUGS (3)
  1. FOSAMAX [Suspect]
     Indication: PROPHYLAXIS
     Dosage: 70 MG, QW
     Route: 048
     Dates: start: 20021016, end: 201003
  2. CORTICOSTEROIDS (UNSPECIFIED) [Concomitant]
     Indication: ASTHMA
     Dosage: UNK
     Dates: start: 1993
  3. CORTICOSTEROIDS (UNSPECIFIED) [Concomitant]
     Indication: BRONCHITIS CHRONIC

REACTIONS (56)
  - Neoplasm malignant [Unknown]
  - Tracheostomy [Unknown]
  - Jaw operation [Unknown]
  - Jaw operation [Unknown]
  - Rotator cuff repair [Unknown]
  - Osteonecrosis of jaw [Unknown]
  - Osteomyelitis [Not Recovered/Not Resolved]
  - Joint injury [Unknown]
  - Foot deformity [Unknown]
  - Toe operation [Unknown]
  - Hypertension [Unknown]
  - Tooth extraction [Not Recovered/Not Resolved]
  - Tooth extraction [Unknown]
  - Debridement [Not Recovered/Not Resolved]
  - Tooth abscess [Not Recovered/Not Resolved]
  - Infection [Not Recovered/Not Resolved]
  - Abscess drainage [Unknown]
  - Dental fistula [Not Recovered/Not Resolved]
  - Secondary sequestrum [Unknown]
  - Trismus [Not Recovered/Not Resolved]
  - Exposed bone in jaw [Not Recovered/Not Resolved]
  - Fistula discharge [Not Recovered/Not Resolved]
  - Tooth abscess [Unknown]
  - Prostatic disorder [Unknown]
  - Sinusitis [Unknown]
  - Exposure to toxic agent [Unknown]
  - Chronic obstructive pulmonary disease [Not Recovered/Not Resolved]
  - Restrictive pulmonary disease [Not Recovered/Not Resolved]
  - Venous insufficiency [Not Recovered/Not Resolved]
  - Spinal pain [Unknown]
  - Benign prostatic hyperplasia [Unknown]
  - Weight increased [Unknown]
  - Feeding tube complication [Unknown]
  - Hypokalaemia [Unknown]
  - Bone fragmentation [Unknown]
  - Bone fragmentation [Unknown]
  - Lymphadenectomy [Unknown]
  - Swelling [Unknown]
  - Bone fragmentation [Unknown]
  - Blood product transfusion [Unknown]
  - Arthritis [Recovered/Resolved]
  - Weight decreased [Unknown]
  - Tracheostomy tube removal [Unknown]
  - Depressed mood [Unknown]
  - Muscle contracture [Unknown]
  - Laceration [Unknown]
  - Infection [Unknown]
  - Osteomyelitis drainage [Unknown]
  - Hypoaesthesia [Unknown]
  - Stomatitis [Not Recovered/Not Resolved]
  - Back pain [Unknown]
  - Pain in extremity [Unknown]
  - Drug ineffective [Unknown]
  - Diarrhoea [Recovering/Resolving]
  - Local swelling [Unknown]
  - Dysphagia [Unknown]
